FAERS Safety Report 5335103-0 (Version None)
Quarter: 2007Q2

REPORT INFORMATION
  Report Type: 
  Country: None (occurrence: None)
  Receive Date: 20070525
  Receipt Date: 20070516
  Transmission Date: 20071010
  Serious: Yes (Hospitalization, Disabling)
  Sender: FDA-Public Use
  Company Number: US-ABBOTT-07P-163-0362039-00

PATIENT
  Age: 74 Year
  Sex: Female

DRUGS (11)
  1. NORVIR [Suspect]
     Indication: HIV INFECTION
     Route: 048
     Dates: start: 20040205, end: 20070130
  2. NORVIR [Suspect]
     Indication: ACQUIRED IMMUNODEFICIENCY SYNDROME
  3. APTIVUS [Suspect]
     Indication: HIV INFECTION
     Route: 048
     Dates: start: 20040205, end: 20070130
  4. APTIVUS [Suspect]
     Indication: ACQUIRED IMMUNODEFICIENCY SYNDROME
  5. FUZEON [Suspect]
     Indication: HIV INFECTION
     Route: 058
     Dates: start: 20040123, end: 20070130
  6. TENOFOVIR [Concomitant]
     Indication: HIV INFECTION
     Route: 048
     Dates: start: 20040123, end: 20070130
  7. STAVUDINE [Concomitant]
     Indication: HIV INFECTION
     Route: 048
     Dates: start: 20040123, end: 20070130
  8. DIDANOSINE [Concomitant]
     Indication: HIV INFECTION
     Route: 048
     Dates: start: 20040123, end: 20070130
  9. NIFEDIPINE [Concomitant]
     Indication: DRUG USE FOR UNKNOWN INDICATION
     Route: 048
     Dates: start: 19960101
  10. FUROSEMIDE [Concomitant]
     Indication: DRUG USE FOR UNKNOWN INDICATION
     Dates: start: 20060120
  11. POTASSIUM CHLORIDE [Concomitant]
     Indication: DRUG USE FOR UNKNOWN INDICATION
     Dates: start: 20060120

REACTIONS (7)
  - ABASIA [None]
  - ANOREXIA [None]
  - DEHYDRATION [None]
  - DYSPHAGIA [None]
  - EATON-LAMBERT SYNDROME [None]
  - EYELID DISORDER [None]
  - EYELID PTOSIS [None]
